FAERS Safety Report 7650061-1 (Version None)
Quarter: 2011Q3

REPORT INFORMATION
  Report Type: 
  Country: None (occurrence: None)
  Receive Date: 20110802
  Receipt Date: 20110802
  Transmission Date: 20111222
  Serious: Yes (Life-Threatening, Hospitalization)
  Sender: FDA-Public Use
  Company Number: None

PATIENT
  Age: 34 Year
  Sex: Female
  Weight: 53.523 kg

DRUGS (2)
  1. ZOLOFT [Suspect]
     Indication: ANXIETY
     Dates: start: 20110517, end: 20110518
  2. ZOLOFT [Suspect]
     Indication: POSTPARTUM DISORDER
     Dates: start: 20110517, end: 20110518

REACTIONS (3)
  - TACHYPHRENIA [None]
  - PANIC ATTACK [None]
  - SUICIDAL IDEATION [None]
